FAERS Safety Report 19803908 (Version 1)
Quarter: 2021Q3

REPORT INFORMATION
  Report Type: Spontaneous
  Country: HU (occurrence: HU)
  Receive Date: 20210908
  Receipt Date: 20210908
  Transmission Date: 20211014
  Serious: Yes (Other)
  Sender: FDA-Public Use
  Company Number: NVSC2021HU200210

PATIENT
  Age: 27 Year
  Sex: Female

DRUGS (1)
  1. FINGOLIMOD. [Suspect]
     Active Substance: FINGOLIMOD
     Indication: PARAPARESIS
     Dosage: UNK
     Route: 065
     Dates: start: 201205

REACTIONS (1)
  - Paraparesis [Recovering/Resolving]
